FAERS Safety Report 6962251-1 (Version None)
Quarter: 2010Q3

REPORT INFORMATION
  Report Type: 
  Country: None (occurrence: None)
  Receive Date: 20100830
  Receipt Date: 20100819
  Transmission Date: 20110219
  Serious: Yes (Hospitalization, Other)
  Sender: FDA-Public Use
  Company Number: 675080

PATIENT
  Age: 13 Month

DRUGS (3)
  1. ETOPOSIDE [Suspect]
     Indication: CHOROID PLEXUS CARCINOMA
     Dosage: 100 MG/M2 MILLIGRAM(S)/SQ. METER
  2. VINCRISTINE SULFATE [Suspect]
     Indication: CHOROID PLEXUS CARCINOMA
     Dosage: 1.5 MG/M 2 MILLIGRAM(S)/SQ. METER
  3. CYCLOPHOSPHAMIDE [Suspect]
     Indication: CHOROID PLEXUS CARCINOMA
     Dosage: 1000 MG/M 2 MILLIGRAM(S)/SQ. METER

REACTIONS (12)
  - BACTERIAL INFECTION [None]
  - FEBRILE CONVULSION [None]
  - HEMIANOPIA HOMONYMOUS [None]
  - INTRACRANIAL PRESSURE INCREASED [None]
  - IRRITABILITY [None]
  - NEOPLASM RECURRENCE [None]
  - OSTEOMYELITIS [None]
  - SOMNOLENCE [None]
  - STREPTOCOCCUS TEST POSITIVE [None]
  - SUBDURAL EMPYEMA [None]
  - VARICELLA [None]
  - WOUND INFECTION BACTERIAL [None]
